FAERS Safety Report 11635478 (Version 1)
Quarter: 2015Q4

REPORT INFORMATION
  Report Type: Spontaneous
  Country: US (occurrence: US)
  Receive Date: 20151016
  Receipt Date: 20151016
  Transmission Date: 20160304
  Serious: No
  Sender: FDA-Public Use
  Company Number: US-ASTRAZENECA-2015SE96420

PATIENT
  Sex: Female

DRUGS (3)
  1. METFORMIN [Concomitant]
     Active Substance: METFORMIN HYDROCHLORIDE
  2. CRESTOR [Suspect]
     Active Substance: ROSUVASTATIN CALCIUM
     Dosage: EITHER 10 OR 20 MG, UNKNOWN
     Route: 048
     Dates: start: 2015
  3. ATORVASTATIN [Concomitant]
     Active Substance: ATORVASTATIN

REACTIONS (3)
  - Diabetes mellitus [Unknown]
  - Flatulence [Unknown]
  - Diarrhoea [Unknown]

NARRATIVE: CASE EVENT DATE: 2015
